FAERS Safety Report 17940085 (Version 1)
Quarter: 2020Q2

REPORT INFORMATION
  Report Type: Spontaneous
  Country: DE (occurrence: DE)
  Receive Date: 20200624
  Receipt Date: 20200624
  Transmission Date: 20200714
  Serious: Yes (Hospitalization)
  Sender: FDA-Public Use
  Company Number: DE-MYLANLABS-2020M1057546

PATIENT
  Age: 80 Year
  Sex: Male

DRUGS (14)
  1. LACTULOSE. [Concomitant]
     Active Substance: LACTULOSE
     Dosage: 20 MILLILITER, QD(20 ML, 1-0-0-0)
     Route: 048
  2. TAMSULOSIN [Concomitant]
     Active Substance: TAMSULOSIN
     Dosage: 0.4 MILLIGRAM, QD(0.4 MG, 0-0-1-0)
     Route: 048
  3. TORASEMIDE [Suspect]
     Active Substance: TORSEMIDE
     Indication: PRODUCT USED FOR UNKNOWN INDICATION
     Dosage: 10 MILLIGRAM, QD(10 MG, 1-0-0-0)
     Route: 048
  4. ATORVASTATIN [Concomitant]
     Active Substance: ATORVASTATIN
     Dosage: 40 MILLIGRAM, QD(40 MG, 0-0-1-0)
     Route: 048
  5. SALBUTAMOL [Concomitant]
     Active Substance: ALBUTEROL
     Dosage: (NK MG, 1-1-1-0 )TID
     Route: 055
  6. APIXABAN [Suspect]
     Active Substance: APIXABAN
     Indication: PRODUCT USED FOR UNKNOWN INDICATION
     Dosage: 2.5 MILLIGRAM, BID(2.5 MG, 1-0-1-0)
     Route: 048
  7. ERYFER                             /00250301/ [Concomitant]
     Dosage: 100 MILLIGRAM, QD(100 MG, 1-0-0-0)
     Route: 048
  8. SITAGLIPTIN [Concomitant]
     Active Substance: SITAGLIPTIN
     Dosage: 50 MILLIGRAM, QD(50 MG, 1-0-0-0)
     Route: 048
  9. LAXOBERAL [Concomitant]
     Active Substance: SODIUM PICOSULFATE
     Dosage: 7.5 MILLIGRAM(7.5 MG, 12-0-0-0, TROPFEN)
     Route: 048
  10. LEVETIRACETAM. [Concomitant]
     Active Substance: LEVETIRACETAM
     Dosage: (500 MG, 1-0-1-0)
     Route: 048
  11. METAMIZOL                          /06276701/ [Concomitant]
     Active Substance: METAMIZOLE
     Dosage: 500 MILLIGRAM(500 MG, 4X)
     Route: 048
  12. NITRENDIPIN [Concomitant]
     Active Substance: NITRENDIPINE
     Dosage: (10 MG, 1-0-0-0)
     Route: 048
  13. RAMIPRIL. [Concomitant]
     Active Substance: RAMIPRIL
     Dosage: 5 MILLIGRAM, BID(5 MG, 1-0-1-0)
     Route: 048
  14. FOLIC ACID. [Concomitant]
     Active Substance: FOLIC ACID
     Dosage: 5 MILLIGRAM, QD(5 MG, 1-0-0-0, TABLETTEN)
     Route: 048

REACTIONS (6)
  - General physical health deterioration [Unknown]
  - Vomiting [Unknown]
  - Haematemesis [Unknown]
  - Dehydration [Unknown]
  - Pallor [Unknown]
  - Anaemia [Unknown]
